FAERS Safety Report 6686518-X (Version None)
Quarter: 2010Q2

REPORT INFORMATION
  Report Type: 
  Country: None (occurrence: None)
  Receive Date: 20100419
  Receipt Date: 20100408
  Transmission Date: 20101027
  Serious: Yes (Hospitalization)
  Sender: FDA-Public Use
  Company Number: KR-JNJFOC-20090900169

PATIENT
  Sex: Male
  Weight: 70 kg

DRUGS (5)
  1. USTEKINUMAB [Suspect]
     Indication: PSORIASIS
     Route: 058
     Dates: start: 20090218, end: 20090610
  2. USTEKINUMAB [Suspect]
     Route: 058
     Dates: start: 20090218, end: 20090610
  3. USTEKINUMAB [Suspect]
     Route: 058
     Dates: start: 20090218, end: 20090610
  4. PLACEBO [Suspect]
     Indication: PSORIASIS
     Route: 058
  5. METOCLOPRAMIDE HYDROCHLORIDE [Concomitant]
     Route: 042

REACTIONS (1)
  - HENOCH-SCHONLEIN PURPURA [None]
